FAERS Safety Report 15337035 (Version 2)
Quarter: 2018Q4

REPORT INFORMATION
  Report Type: Spontaneous
  Country: DE (occurrence: DE)
  Receive Date: 20180831
  Receipt Date: 20180901
  Transmission Date: 20190204
  Serious: Yes (Other)
  Sender: FDA-Public Use
  Company Number: DE-JNJFOC-20180836446

PATIENT
  Age: 75 Year
  Sex: Male

DRUGS (2)
  1. REGAINE MANNER SCHAUM 5% [Suspect]
     Active Substance: MINOXIDIL
     Indication: ALOPECIA
     Dosage: ONCE A DAY FOR THE FOLLOWING 1.5 WEEKS
     Route: 061
     Dates: end: 20180822
  2. REGAINE MANNER SCHAUM 5% [Suspect]
     Active Substance: MINOXIDIL
     Indication: ALOPECIA
     Dosage: 1G TWICE A DAY FOR 1.5 WEEKS
     Route: 061
     Dates: start: 20180802

REACTIONS (7)
  - Weight increased [Not Recovered/Not Resolved]
  - Peripheral swelling [Not Recovered/Not Resolved]
  - Hypotension [Not Recovered/Not Resolved]
  - Arrhythmia [Not Recovered/Not Resolved]
  - Contraindicated product administered [Unknown]
  - Heart rate increased [Not Recovered/Not Resolved]
  - Headache [Not Recovered/Not Resolved]

NARRATIVE: CASE EVENT DATE: 201808
